FAERS Safety Report 16767679 (Version 1)
Quarter: 2019Q4

REPORT INFORMATION
  Report Type: Spontaneous
  Country: US (occurrence: US)
  Receive Date: 20190903
  Receipt Date: 20190903
  Transmission Date: 20200122
  Serious: Yes (Hospitalization, Disabling)
  Sender: FDA-Public Use
  Company Number: None

PATIENT
  Age: 15 Year
  Sex: Female
  Weight: 63 kg

DRUGS (2)
  1. MONTELUKAST [Suspect]
     Active Substance: MONTELUKAST SODIUM
     Indication: ASTHMA
     Dosage: ?          QUANTITY:1 TABLET(S);?
     Route: 048
     Dates: start: 20170412, end: 20181129
  2. MONTELUKAST [Suspect]
     Active Substance: MONTELUKAST SODIUM
     Indication: MULTIPLE ALLERGIES
     Dosage: ?          QUANTITY:1 TABLET(S);?
     Route: 048
     Dates: start: 20170412, end: 20181129

REACTIONS (24)
  - Dizziness [None]
  - Headache [None]
  - Anxiety [None]
  - Fall [None]
  - Visual impairment [None]
  - Drug ineffective [None]
  - Epilepsy [None]
  - Altered state of consciousness [None]
  - Migraine [None]
  - Atonic seizures [None]
  - Back disorder [None]
  - Idiopathic generalised epilepsy [None]
  - Syncope [None]
  - Vision blurred [None]
  - Staring [None]
  - Generalised tonic-clonic seizure [None]
  - Aura [None]
  - Seizure [None]
  - Neurological symptom [None]
  - Panic reaction [None]
  - Stress fracture [None]
  - Dyspnoea [None]
  - Juvenile myoclonic epilepsy [None]
  - Chest pain [None]

NARRATIVE: CASE EVENT DATE: 20180515
